FAERS Safety Report 8283461-X (Version None)
Quarter: 2012Q2

REPORT INFORMATION
  Report Type: 
  Country: None (occurrence: None)
  Receive Date: 20120413
  Receipt Date: 20120403
  Transmission Date: 20120825
  Serious: Yes (Hospitalization, Other)
  Sender: FDA-Public Use
  Company Number: US-ROCHE-793632

PATIENT
  Sex: Male
  Weight: 40.86 kg

DRUGS (2)
  1. ACCUTANE [Suspect]
     Indication: PRODUCT USED FOR UNKNOWN INDICATION
     Route: 065
     Dates: start: 20081101, end: 20081201
  2. ACCUTANE [Suspect]

REACTIONS (11)
  - EMOTIONAL DISTRESS [None]
  - CROHN'S DISEASE [None]
  - DEPRESSION [None]
  - ARTHRITIS [None]
  - VASCULITIS [None]
  - IRRITABLE BOWEL SYNDROME [None]
  - WEIGHT DECREASED [None]
  - INFLAMMATORY BOWEL DISEASE [None]
  - INTESTINAL OBSTRUCTION [None]
  - LIP SWELLING [None]
  - INTESTINAL HAEMORRHAGE [None]
